FAERS Safety Report 13274230 (Version 1)
Quarter: 2017Q1

REPORT INFORMATION
  Report Type: Spontaneous
  Country: US (occurrence: US)
  Receive Date: 20170227
  Receipt Date: 20170227
  Transmission Date: 20170428
  Serious: Yes (Death, Hospitalization)
  Sender: FDA-Public Use
  Company Number: US-SA-2017SA031702

PATIENT
  Age: 70 Year
  Sex: Female

DRUGS (1)
  1. ELITEK [Suspect]
     Active Substance: RASBURICASE
     Indication: MANTLE CELL LYMPHOMA
     Route: 065

REACTIONS (2)
  - Somnolence [Unknown]
  - Death [Fatal]
